FAERS Safety Report 25797184 (Version 2)
Quarter: 2025Q3

REPORT INFORMATION
  Report Type: Spontaneous
  Country: US (occurrence: US)
  Receive Date: 20250912
  Receipt Date: 20250919
  Transmission Date: 20251020
  Serious: Yes (Hospitalization, Other)
  Sender: TORRENT PHARMA INC.
  Company Number: US-TORRENT-00014504

PATIENT
  Age: 52 Year
  Sex: Female

DRUGS (2)
  1. LAMOTRIGINE [Suspect]
     Active Substance: LAMOTRIGINE
     Indication: Epilepsy
     Dosage: 300MG BID
     Route: 065
  2. BRIVARACETAM [Suspect]
     Active Substance: BRIVARACETAM
     Indication: Epilepsy
     Route: 065

REACTIONS (9)
  - Toxicity to various agents [Unknown]
  - Seizure [Unknown]
  - Encephalopathy [Unknown]
  - Vomiting [Unknown]
  - Ataxia [Unknown]
  - Gaze palsy [Unknown]
  - Diplopia [Unknown]
  - Fall [Unknown]
  - Nystagmus [Unknown]
